FAERS Safety Report 21521322 (Version 1)
Quarter: 2022Q4

REPORT INFORMATION
  Report Type: Spontaneous
  Country: US (occurrence: US)
  Receive Date: 20221028
  Receipt Date: 20221028
  Transmission Date: 20230113
  Serious: No
  Sender: FDA-Public Use
  Company Number: US-ELI_LILLY_AND_COMPANY-US202210000666

PATIENT
  Age: 68 Year
  Sex: Female

DRUGS (1)
  1. BEBTELOVIMAB [Suspect]
     Active Substance: BEBTELOVIMAB
     Indication: COVID-19
     Dates: start: 20220928

REACTIONS (5)
  - Dizziness [Not Recovered/Not Resolved]
  - Ear discomfort [Unknown]
  - Laryngopharyngitis [Unknown]
  - Nasal congestion [Unknown]
  - Eating disorder [Unknown]

NARRATIVE: CASE EVENT DATE: 20220929
